FAERS Safety Report 4605656-6 (Version None)
Quarter: 2005Q1

REPORT INFORMATION
  Report Type: 
  Country: None (occurrence: None)
  Receive Date: 20050310
  Receipt Date: 20041229
  Transmission Date: 20050727
  Serious: No
  Sender: FDA-Public Use
  Company Number: US-BRISTOL-MYERS SQUIBB COMPANY-12814513

PATIENT
  Age: 33 Year
  Sex: Female

DRUGS (3)
  1. VAGISTAT-1 [Suspect]
     Indication: GENITAL PRURITUS FEMALE
     Route: 067
     Dates: start: 20041228, end: 20041228
  2. VAGISIL [Concomitant]
  3. MULTI-VITAMINS [Concomitant]

REACTIONS (1)
  - VAGINAL SWELLING [None]
